FAERS Safety Report 16848295 (Version 3)
Quarter: 2020Q2

REPORT INFORMATION
  Report Type: Report from Study
  Country: US (occurrence: US)
  Receive Date: 20190925
  Receipt Date: 20200407
  Transmission Date: 20200713
  Serious: Yes (Hospitalization, Other)
  Sender: FDA-Public Use
  Company Number: US-ROCHE-2407819

PATIENT
  Age: 54 Year
  Sex: Male

DRUGS (8)
  1. BRINTELLIX [Concomitant]
     Active Substance: VORTIOXETINE HYDROBROMIDE
     Indication: DEPRESSION
  2. ASPIRIN [ACETYLSALICYLIC ACID] [Concomitant]
     Active Substance: ASPIRIN
  3. BUPROPION. [Concomitant]
     Active Substance: BUPROPION
  4. VITAMIN B12 [Concomitant]
     Active Substance: CYANOCOBALAMIN
  5. CLONAZEPAM. [Suspect]
     Active Substance: CLONAZEPAM
     Indication: INSOMNIA
     Route: 048
  6. BRINTELLIX [Concomitant]
     Active Substance: VORTIOXETINE HYDROBROMIDE
     Indication: ANXIETY
  7. ROPINIROLE. [Concomitant]
     Active Substance: ROPINIROLE
  8. OCREVUS [Suspect]
     Active Substance: OCRELIZUMAB
     Indication: RELAPSING-REMITTING MULTIPLE SCLEROSIS
     Route: 065
     Dates: start: 20190816

REACTIONS (10)
  - Dyspnoea [Recovered/Resolved]
  - Diplopia [Recovered/Resolved]
  - Feeling jittery [Unknown]
  - Vomiting [Recovered/Resolved]
  - Gait disturbance [Recovered/Resolved]
  - Joint dislocation [Not Recovered/Not Resolved]
  - Pneumonia [Recovered/Resolved]
  - Hyperhidrosis [Recovered/Resolved]
  - Heart rate decreased [Recovered/Resolved]
  - Fatigue [Recovered/Resolved]

NARRATIVE: CASE EVENT DATE: 20190823
